FAERS Safety Report 5965609-2 (Version None)
Quarter: 2008Q4

REPORT INFORMATION
  Report Type: 
  Country: None (occurrence: None)
  Receive Date: 20081119
  Receipt Date: 20081030
  Transmission Date: 20090506
  Serious: Yes (Other)
  Sender: FDA-Public Use
  Company Number: GB-DEXPHARM-20081298

PATIENT
  Age: 36 Year
  Sex: Female

DRUGS (4)
  1. DICLOFENAC SODIUM [Suspect]
  2. REGOXETINE [Suspect]
     Indication: ANXIETY
     Dosage: 4 MG MILLIGRAM(S), 2 IN 1 DAY;
     Dates: start: 20050101
  3. REGOXETINE [Suspect]
     Indication: DEPRESSION
     Dosage: 4 MG MILLIGRAM(S), 2 IN 1 DAY;
     Dates: start: 20050101
  4. DIAZEPAM [Suspect]
     Indication: MUSCLE SPASMS
     Dosage: 5 MG MILLIGRAM(S), 3 IN 1 DAY;
     Dates: start: 20080905

REACTIONS (5)
  - DRUG INTERACTION [None]
  - FEELING ABNORMAL [None]
  - HALLUCINATION, AUDITORY [None]
  - MUSCLE SPASMS [None]
  - SUICIDAL IDEATION [None]
